FAERS Safety Report 14441745 (Version 4)
Quarter: 2018Q1

REPORT INFORMATION
  Report Type: Report from Study
  Country: US (occurrence: US)
  Receive Date: 20180125
  Receipt Date: 20180308
  Transmission Date: 20180509
  Serious: Yes (Hospitalization, Other)
  Sender: FDA-Public Use
  Company Number: US-GILEAD-2017-0299641

PATIENT
  Age: 66 Year
  Sex: Female
  Weight: 74.83 kg

DRUGS (19)
  1. UPTRAVI [Suspect]
     Active Substance: SELEXIPAG
     Dosage: 800 MG, QD
     Route: 048
  2. METOPROLOL. [Concomitant]
     Active Substance: METOPROLOL
  3. FUROSEMIDE. [Concomitant]
     Active Substance: FUROSEMIDE
  4. SPIRIVA [Concomitant]
     Active Substance: TIOTROPIUM BROMIDE MONOHYDRATE
  5. TADALAFIL [Concomitant]
     Active Substance: TADALAFIL
  6. OMEPRAZOLE. [Concomitant]
     Active Substance: OMEPRAZOLE
  7. AMLODIPINE [Concomitant]
     Active Substance: AMLODIPINE BESYLATE
  8. ASPIRIN                            /00002701/ [Concomitant]
     Active Substance: ASPIRIN
  9. AMBRISENTAN [Suspect]
     Active Substance: AMBRISENTAN
     Indication: SCLERODERMA
  10. POTASSIUM CHLORIDE. [Concomitant]
     Active Substance: POTASSIUM CHLORIDE
  11. ADCIRCA [Concomitant]
     Active Substance: TADALAFIL
  12. LEVOTHYROXINE. [Concomitant]
     Active Substance: LEVOTHYROXINE
  13. ALPRAZOLAM. [Concomitant]
     Active Substance: ALPRAZOLAM
  14. TORSEMIDE. [Concomitant]
     Active Substance: TORSEMIDE
  15. FLOVENT [Concomitant]
     Active Substance: FLUTICASONE PROPIONATE
  16. AMBRISENTAN [Suspect]
     Active Substance: AMBRISENTAN
     Indication: PULMONARY HYPERTENSION
     Dosage: 10 MG, QD
     Route: 048
     Dates: start: 20160414
  17. UPTRAVI [Suspect]
     Active Substance: SELEXIPAG
     Indication: PRODUCT USED FOR UNKNOWN INDICATION
     Dosage: 1600 MG, BID
     Route: 065
  18. FLUTICASONE. [Concomitant]
     Active Substance: FLUTICASONE
  19. ALBUTEROL                          /00139501/ [Concomitant]
     Active Substance: ALBUTEROL

REACTIONS (14)
  - Pyrexia [Recovered/Resolved]
  - Bacterial infection [Unknown]
  - Migraine [Recovered/Resolved]
  - Chills [Not Recovered/Not Resolved]
  - Diarrhoea [Recovered/Resolved]
  - Dyspnoea [Recovered/Resolved]
  - Presyncope [Unknown]
  - Cough [Recovered/Resolved]
  - Oedema [Unknown]
  - Headache [Unknown]
  - Treatment noncompliance [Recovered/Resolved]
  - Dehydration [Recovered/Resolved]
  - Depression [Unknown]
  - Gastroenteritis viral [Unknown]

NARRATIVE: CASE EVENT DATE: 20180112
